FAERS Safety Report 5356456-3 (Version None)
Quarter: 2007Q2

REPORT INFORMATION
  Report Type: 
  Country: None (occurrence: None)
  Receive Date: 20070530
  Receipt Date: 20061005
  Transmission Date: 20071010
  Serious: Yes (Hospitalization)
  Sender: FDA-Public Use
  Company Number: US200609000274

PATIENT
  Age: 49 Year
  Sex: Male
  Weight: 88.4 kg

DRUGS (1)
  1. ZYPREXA [Suspect]
     Indication: PSYCHOTIC DISORDER
     Dosage: 30 MG, ORAL
     Route: 048
     Dates: start: 19990101

REACTIONS (5)
  - BLOOD CHOLESTEROL INCREASED [None]
  - BLOOD TRIGLYCERIDES [None]
  - DIABETES MELLITUS [None]
  - HEART RATE INCREASED [None]
  - METABOLIC DISORDER [None]
